FAERS Safety Report 19677085 (Version 1)
Quarter: 2021Q3

REPORT INFORMATION
  Report Type: Spontaneous
  Country: US (occurrence: US)
  Receive Date: 20210809
  Receipt Date: 20210809
  Transmission Date: 20211014
  Serious: Yes (Other)
  Sender: FDA-Public Use
  Company Number: US-CIPLA LTD.-2021US05379

PATIENT

DRUGS (9)
  1. METHYLDOPA. [Suspect]
     Active Substance: METHYLDOPA
     Indication: MALIGNANT HYPERTENSION
     Dosage: UNK
     Route: 065
  2. FUROSEMIDE. [Suspect]
     Active Substance: FUROSEMIDE
     Indication: MALIGNANT HYPERTENSION
     Dosage: UNK
     Route: 065
  3. SPIRONOLACTONE. [Suspect]
     Active Substance: SPIRONOLACTONE
     Indication: MALIGNANT HYPERTENSION
     Dosage: UNK
     Route: 065
  4. BUPIVACAINE. [Suspect]
     Active Substance: BUPIVACAINE
     Indication: ANALGESIC THERAPY
     Dosage: 15?20 ML BOLUS OF 0.1% GIVEN IN DIVIDED DOSES
     Route: 008
  5. HYDRALAZINE [Suspect]
     Active Substance: HYDRALAZINE HYDROCHLORIDE
     Indication: MALIGNANT HYPERTENSION
     Dosage: UNK
     Route: 065
  6. FENTANYL. [Suspect]
     Active Substance: FENTANYL
     Indication: ANALGESIC THERAPY
     Dosage: 50 MICROGARM, UNK
     Route: 008
  7. LABETALOL [Suspect]
     Active Substance: LABETALOL\LABETALOL HYDROCHLORIDE
     Indication: MALIGNANT HYPERTENSION
     Dosage: UNK
     Route: 065
  8. ISOSORBIDE DINITRATE. [Suspect]
     Active Substance: ISOSORBIDE DINITRATE
     Indication: MALIGNANT HYPERTENSION
     Dosage: UNK
     Route: 065
  9. ENOXAPARIN [Suspect]
     Active Substance: ENOXAPARIN
     Indication: MALIGNANT HYPERTENSION
     Dosage: UNK
     Route: 065

REACTIONS (2)
  - Foetal death [Unknown]
  - Exposure during pregnancy [Unknown]
